FAERS Safety Report 15702424 (Version 5)
Quarter: 2020Q4

REPORT INFORMATION
  Report Type: Report from Study
  Country: AU (occurrence: AU)
  Receive Date: 20181210
  Receipt Date: 20201224
  Transmission Date: 20210113
  Serious: Yes (Hospitalization)
  Sender: FDA-Public Use
  Company Number: AU-ROCHE-2223692

PATIENT
  Age: 49 Year
  Sex: Female
  Weight: 93.9 kg

DRUGS (21)
  1. OXYCODONE [Concomitant]
     Active Substance: OXYCODONE
     Indication: HEPATIC PAIN
     Route: 048
     Dates: start: 20181107, end: 20181108
  2. LEVOTHYROXINE. [Concomitant]
     Active Substance: LEVOTHYROXINE
     Indication: HYPOTHYROIDISM
     Route: 048
     Dates: start: 2001
  3. IRBESARTAN. [Concomitant]
     Active Substance: IRBESARTAN
     Indication: HYPERTENSION
     Dosage: 300/12.5
     Route: 048
     Dates: start: 1999
  4. PARACETAMOL [Concomitant]
     Active Substance: ACETAMINOPHEN
     Indication: HEPATIC PAIN
     Route: 048
     Dates: start: 20181106, end: 20181109
  5. PARACETAMOL [Concomitant]
     Active Substance: ACETAMINOPHEN
     Route: 048
     Dates: start: 20181127, end: 20181224
  6. PARACETAMOL [Concomitant]
     Active Substance: ACETAMINOPHEN
     Indication: PAIN
     Route: 048
     Dates: start: 20180919, end: 20181105
  7. CALCIUM LEUCOVORIN [Concomitant]
     Active Substance: LEUCOVORIN CALCIUM
     Dates: start: 20180320, end: 20180821
  8. POTASSIUM [Concomitant]
     Active Substance: POTASSIUM
     Dates: start: 20181129, end: 20181130
  9. MAGNESIUM [Concomitant]
     Active Substance: MAGNESIUM
     Indication: HYPOMAGNESAEMIA
     Route: 042
     Dates: start: 20181127, end: 20181128
  10. MAGNESIUM [Concomitant]
     Active Substance: MAGNESIUM
     Route: 048
     Dates: start: 20181129
  11. AMOXICILLIN/CLAVULANIC ACID [Concomitant]
     Active Substance: AMOXICILLIN\CLAVULANIC ACID
     Indication: CYTOKINE RELEASE SYNDROME
     Dosage: 875/125: 1 TAB
     Route: 048
     Dates: start: 20181108, end: 20181113
  12. FENTANYL. [Concomitant]
     Active Substance: FENTANYL
     Route: 042
     Dates: start: 20181127, end: 20181127
  13. OXYCODONE [Concomitant]
     Active Substance: OXYCODONE
     Route: 048
     Dates: start: 20181107, end: 20181108
  14. POTASSIUM [Concomitant]
     Active Substance: POTASSIUM
     Indication: HYPOKALAEMIA
     Route: 042
     Dates: start: 20181127, end: 20181128
  15. PANTOPRAZOLE [Concomitant]
     Active Substance: PANTOPRAZOLE
     Route: 048
     Dates: start: 20180919, end: 20181029
  16. IBUPROFEN. [Concomitant]
     Active Substance: IBUPROFEN
     Indication: HEPATIC PAIN
     Route: 048
     Dates: start: 20181130, end: 20181202
  17. ATEZOLIZUMAB. [Suspect]
     Active Substance: ATEZOLIZUMAB
     Indication: COLORECTAL CANCER
     Dosage: ON 26/NOV/2018, RECEIVED MOST RECENT DOSE OF ATEZOLIZUMAB 265 ML.
     Route: 042
     Dates: start: 20181105, end: 20181126
  18. TALIMOGENE LAHERPAREPVEC [Suspect]
     Active Substance: TALIMOGENE LAHERPAREPVEC
     Indication: COLORECTAL CANCER
     Dosage: ON 27/NOV/2018, RECEIVED MOST RECENT DOSE OF TALIMOGENE LAHERPAREPVEC 4ML
     Route: 026
     Dates: start: 20181106, end: 20181127
  19. FENTANYL. [Concomitant]
     Active Substance: FENTANYL
     Indication: HEPATIC PAIN
     Route: 042
     Dates: start: 20181106, end: 20181108
  20. CALCIUM LEUCOVORIN [Concomitant]
     Active Substance: LEUCOVORIN CALCIUM
     Indication: COLORECTAL CANCER STAGE IV
     Dates: start: 20170111, end: 20170114
  21. OXYCONTIN [Concomitant]
     Active Substance: OXYCODONE HYDROCHLORIDE
     Indication: HEPATIC PAIN
     Route: 048
     Dates: start: 20181127, end: 20181128

REACTIONS (2)
  - Electrocardiogram QT prolonged [Recovered/Resolved]
  - Cytokine release syndrome [Recovered/Resolved]

NARRATIVE: CASE EVENT DATE: 20181127
